FAERS Safety Report 25300151 (Version 2)
Quarter: 2025Q2

REPORT INFORMATION
  Report Type: Spontaneous
  Country: US (occurrence: US)
  Receive Date: 20250512
  Receipt Date: 20250609
  Transmission Date: 20250716
  Serious: Yes (Other)
  Sender: BAYER HEALTHCARE PHARMACEUTICALS INC.
  Company Number: US-BAYER-2025A061361

PATIENT
  Age: 33 Year
  Sex: Female

DRUGS (1)
  1. MIRENA [Suspect]
     Active Substance: LEVONORGESTREL
     Indication: Heavy menstrual bleeding
     Dosage: 20?G/DAY
     Route: 015
     Dates: start: 202504

REACTIONS (4)
  - Device dislocation [Recovered/Resolved]
  - Procedural pain [Recovered/Resolved]
  - Genital haemorrhage [Recovered/Resolved]
  - Vaginal discharge [None]

NARRATIVE: CASE EVENT DATE: 20250101
